FAERS Safety Report 16212351 (Version 3)
Quarter: 2020Q1

REPORT INFORMATION
  Report Type: Spontaneous
  Country: US (occurrence: US)
  Receive Date: 20190418
  Receipt Date: 20200305
  Transmission Date: 20200409
  Serious: No
  Sender: FDA-Public Use
  Company Number: US-PFIZER INC-2019134157

PATIENT
  Age: 53 Year
  Sex: Male

DRUGS (1)
  1. DILANTIN [Suspect]
     Active Substance: PHENYTOIN
     Dosage: UNK UNK, ALTERNATE DAY, (5 CAPS ALTERNATING WITH 6 CAPS QOD (EVERY OTHER DAY))

REACTIONS (3)
  - Road traffic accident [Unknown]
  - Off label use [Unknown]
  - Product use issue [Unknown]
